FAERS Safety Report 24378710 (Version 1)
Quarter: 2024Q3

REPORT INFORMATION
  Report Type: Spontaneous
  Country: US (occurrence: None)
  Receive Date: 20240929
  Receipt Date: 20240929
  Transmission Date: 20241017
  Serious: Yes (Other)
  Sender: Public
  Company Number: None

PATIENT
  Age: 12 Year
  Sex: Female
  Weight: 50.4 kg

DRUGS (3)
  1. EQUATE COOL AND HEAT PAIN RELIEVING LIQUID [Suspect]
     Active Substance: MENTHOL
     Indication: Arthralgia
     Dosage: FREQUENCY : AS NEEDED;?
     Route: 061
     Dates: start: 20240928, end: 20240928
  2. VITAMINS [Concomitant]
     Active Substance: VITAMINS
  3. probiotic [Concomitant]

REACTIONS (4)
  - Application site discomfort [None]
  - Application site pain [None]
  - Chemical burn [None]
  - Lacrimation increased [None]

NARRATIVE: CASE EVENT DATE: 20240928
